FAERS Safety Report 8465699-1 (Version None)
Quarter: 2012Q2

REPORT INFORMATION
  Report Type: 
  Country: None (occurrence: None)
  Receive Date: 20120620
  Receipt Date: 20120620
  Transmission Date: 20120825
  Serious: No
  Sender: FDA-Public Use
  Company Number: None

PATIENT
  Sex: Female
  Weight: 72.1219 kg

DRUGS (2)
  1. TORSEMIDE [Suspect]
     Indication: JOINT SWELLING
     Dosage: 25 + 100MG 1 DAILY
     Dates: start: 20120329, end: 20120515
  2. TORSEMIDE [Suspect]
     Indication: OEDEMA PERIPHERAL
     Dosage: 25 + 100MG 1 DAILY
     Dates: start: 20120329, end: 20120515

REACTIONS (1)
  - DECREASED APPETITE [None]
